FAERS Safety Report 5876429-1 (Version None)
Quarter: 2008Q3

REPORT INFORMATION
  Report Type: 
  Country: None (occurrence: None)
  Receive Date: 20080910
  Receipt Date: 20080828
  Transmission Date: 20090109
  Serious: Yes (Hospitalization)
  Sender: FDA-Public Use
  Company Number: JP-BRISTOL-MYERS SQUIBB COMPANY-14327340

PATIENT
  Age: 74 Year
  Sex: Male

DRUGS (3)
  1. CARBIDOPA + LEVODOPA [Suspect]
     Dosage: 100MG,3PER DAY 30JUL07
     Route: 048
     Dates: start: 20070730
  2. LOXOPROFEN SODIUM [Suspect]
     Route: 048
  3. FAMOTIDINE TABS [Suspect]
     Dosage: FAMOTIDINE ODT 30JUN03-30AUG0710MG + FAMOTIDINE 10MG/DAY,ORAL,31AUG07-26AUG2008
     Route: 048
     Dates: start: 20030630, end: 20070830

REACTIONS (1)
  - RENAL DISORDER [None]
